FAERS Safety Report 5033123-7 (Version None)
Quarter: 2006Q2

REPORT INFORMATION
  Report Type: 
  Country: None (occurrence: None)
  Receive Date: 20060622
  Receipt Date: 20060329
  Transmission Date: 20061013
  Serious: Yes (Hospitalization)
  Sender: FDA-Public Use
  Company Number: FRWYE516229MAR06

PATIENT
  Sex: Female

DRUGS (5)
  1. ENBREL [Suspect]
     Indication: RHEUMATOID ARTHRITIS
     Route: 058
     Dates: start: 20010101, end: 20060201
  2. METHOTREXATE [Suspect]
     Indication: RHEUMATOID ARTHRITIS
     Dates: end: 20060201
  3. CORTANCYL [Concomitant]
     Dosage: 2 TO 3 MG TOTAL DAILY
     Route: 048
  4. VALSARTAN [Concomitant]
     Indication: HYPERTENSION
     Dosage: UNKNOWN
     Route: 048
  5. ACTONEL [Concomitant]
     Dates: start: 20020101

REACTIONS (4)
  - BRONCHITIS HAEMOPHILUS [None]
  - HAEMOPHILUS INFECTION [None]
  - PULMONARY FIBROSIS [None]
  - SUPERINFECTION LUNG [None]
